FAERS Safety Report 23597537 (Version 1)
Quarter: 2024Q1

REPORT INFORMATION
  Report Type: Spontaneous
  Country: FR (occurrence: FR)
  Receive Date: 20240305
  Receipt Date: 20240305
  Transmission Date: 20240410
  Serious: Yes (Other)
  Sender: FDA-Public Use
  Company Number: None

PATIENT
  Age: 34 Year
  Sex: Female

DRUGS (4)
  1. EPIRUBICIN HYDROCHLORIDE [Suspect]
     Active Substance: EPIRUBICIN HYDROCHLORIDE
     Indication: Invasive ductal breast carcinoma
     Dosage: 4 CYCLES
     Route: 042
     Dates: start: 20230315, end: 20230517
  2. PERTUZUMAB [Suspect]
     Active Substance: PERTUZUMAB
     Indication: Invasive ductal breast carcinoma
     Dosage: 4 CYCLES
     Route: 042
     Dates: start: 20230307, end: 20230517
  3. HERCEPTIN [Suspect]
     Active Substance: TRASTUZUMAB
     Indication: Invasive ductal breast carcinoma
     Dosage: 4 CYCLES
     Route: 042
     Dates: start: 20230607, end: 20230809
  4. HERCEPTIN [Suspect]
     Active Substance: TRASTUZUMAB
     Dosage: 1 DF, CYCLIC
     Route: 042
     Dates: start: 20230315, end: 20230517

REACTIONS (1)
  - Ventricular dysfunction [Not Recovered/Not Resolved]

NARRATIVE: CASE EVENT DATE: 20240216
